FAERS Safety Report 6208746-X (Version None)
Quarter: 2009Q2

REPORT INFORMATION
  Report Type: 
  Country: None (occurrence: None)
  Receive Date: 20090522
  Receipt Date: 20090204
  Transmission Date: 20091009
  Serious: No
  Sender: FDA-Public Use
  Company Number: 8042488

PATIENT
  Age: 54 Year
  Sex: Female
  Weight: 72.7 kg

DRUGS (5)
  1. CIMZIA [Suspect]
     Indication: CROHN'S DISEASE
     Dosage: 400 MG SC
     Route: 058
     Dates: start: 20081218
  2. HYZAAR [Concomitant]
  3. NORVASC [Concomitant]
  4. PENTASA [Concomitant]
  5. ENTOCORT EC [Concomitant]

REACTIONS (2)
  - MUSCLE SPASMS [None]
  - PRURITUS [None]
